FAERS Safety Report 5982708-X (Version None)
Quarter: 2008Q4

REPORT INFORMATION
  Report Type: 
  Country: None (occurrence: None)
  Receive Date: 20081208
  Receipt Date: 20081127
  Transmission Date: 20090506
  Serious: Yes (Other)
  Sender: FDA-Public Use
  Company Number: CA-BAYER-200830311NA

PATIENT
  Age: 54 Year
  Sex: Female

DRUGS (7)
  1. CIPRO [Suspect]
     Indication: DRUG USE FOR UNKNOWN INDICATION
     Dates: start: 20080712, end: 20080719
  2. CLOZARIL [Interacting]
     Indication: SCHIZOPHRENIA
     Route: 048
  3. LIPITOR [Concomitant]
  4. XANAX [Concomitant]
  5. METFORMIN HCL [Concomitant]
  6. COLACE [Concomitant]
  7. ARICEPT [Concomitant]
     Dates: end: 20080701

REACTIONS (4)
  - AKATHISIA [None]
  - ANTIPSYCHOTIC DRUG LEVEL INCREASED [None]
  - CONFUSIONAL STATE [None]
  - HEMIPARESIS [None]
